FAERS Safety Report 4953723-X (Version None)
Quarter: 2006Q1

REPORT INFORMATION
  Report Type: 
  Country: None (occurrence: None)
  Receive Date: 20060323
  Receipt Date: 20060323
  Transmission Date: 20060701
  Serious: Yes (Death)
  Sender: FDA-Public Use
  Company Number: None

PATIENT
  Age: 56 Year
  Sex: Male

DRUGS (3)
  1. XELODA [Suspect]
     Indication: CARCINOID TUMOUR
     Dosage: 1500 MG 2X DAILY BID PO
     Route: 048
     Dates: start: 20060315
  2. XELODA [Suspect]
     Indication: METASTASIS
     Dosage: 1500 MG 2X DAILY BID PO
     Route: 048
     Dates: start: 20060315
  3. TEMOZOLOMIDE 100 MG -SCHERING-PLOUGH- [Suspect]
     Dosage: 400 MG DAILY PO
     Route: 048
     Dates: start: 20060315

REACTIONS (7)
  - BILE DUCT OBSTRUCTION [None]
  - HEPATIC CANCER METASTATIC [None]
  - LYMPHADENOPATHY [None]
  - MALIGNANT NEOPLASM PROGRESSION [None]
  - METASTASES TO PERITONEUM [None]
  - PANCREATIC MASS [None]
  - UPPER GASTROINTESTINAL HAEMORRHAGE [None]
